FAERS Safety Report 19831649 (Version 2)
Quarter: 2021Q3

REPORT INFORMATION
  Report Type: Spontaneous
  Country: US (occurrence: US)
  Receive Date: 20210914
  Receipt Date: 20210916
  Transmission Date: 20211014
  Serious: No
  Sender: FDA-Public Use
  Company Number: US-VIVUS, INC.-2020V1000220

PATIENT
  Age: 49 Year
  Sex: Female
  Weight: 67.19 kg

DRUGS (2)
  1. LINZESS [Concomitant]
     Active Substance: LINACLOTIDE
     Indication: CONSTIPATION
     Route: 048
  2. QSYMIA [Suspect]
     Active Substance: PHENTERMINE HYDROCHLORIDE\TOPIRAMATE
     Indication: WEIGHT DECREASED
     Route: 048

REACTIONS (4)
  - Cardiac murmur [Not Recovered/Not Resolved]
  - Chest discomfort [Not Recovered/Not Resolved]
  - Headache [Not Recovered/Not Resolved]
  - Palpitations [Not Recovered/Not Resolved]

NARRATIVE: CASE EVENT DATE: 20200911
